FAERS Safety Report 6752940-6 (Version None)
Quarter: 2010Q2

REPORT INFORMATION
  Report Type: 
  Country: None (occurrence: None)
  Receive Date: 20100603
  Receipt Date: 20100519
  Transmission Date: 20101027
  Serious: Yes (Hospitalization, Other)
  Sender: FDA-Public Use
  Company Number: US-BAYER-200942455NA

PATIENT
  Age: 40 Year
  Sex: Female
  Weight: 49 kg

DRUGS (5)
  1. YAZ [Suspect]
     Indication: PREMENSTRUAL SYNDROME
     Route: 048
     Dates: start: 20071020, end: 20071119
  2. FLONASE [Concomitant]
     Dates: start: 20070901
  3. ZYRTEC [Concomitant]
     Dates: start: 20070926, end: 20071201
  4. TRAZODONE HCL [Concomitant]
     Dates: start: 20071114
  5. FLEXERIL [Concomitant]
     Dates: start: 20070910

REACTIONS (4)
  - DEEP VEIN THROMBOSIS [None]
  - OEDEMA PERIPHERAL [None]
  - PAIN IN EXTREMITY [None]
  - VARICOSE VEIN [None]
